FAERS Safety Report 23229448 (Version 1)
Quarter: 2023Q4

REPORT INFORMATION
  Report Type: Spontaneous
  Country: US (occurrence: US)
  Receive Date: 20231127
  Receipt Date: 20231127
  Transmission Date: 20240109
  Serious: Yes (Hospitalization, Other)
  Sender: FDA-Public Use
  Company Number: US-drreddys-SPO/USA/23/0187065

PATIENT
  Age: 74 Year
  Sex: Female

DRUGS (5)
  1. DOXORUBICIN [Suspect]
     Active Substance: DOXORUBICIN
     Indication: Waldenstrom^s macroglobulinaemia
     Dosage: SIX CYCLES
  2. BENDAMUSTINE [Suspect]
     Active Substance: BENDAMUSTINE
     Indication: Waldenstrom^s macroglobulinaemia
     Dosage: SIX CYCLES
  3. CLADRIBINE [Suspect]
     Active Substance: CLADRIBINE
     Indication: Waldenstrom^s macroglobulinaemia
     Dosage: SIX CYCLES
  4. RITUXIMAB [Concomitant]
     Active Substance: RITUXIMAB
     Indication: Waldenstrom^s macroglobulinaemia
  5. BORTEZOMIB [Concomitant]
     Active Substance: BORTEZOMIB
     Indication: Waldenstrom^s macroglobulinaemia
     Dosage: SIX CYCLES

REACTIONS (2)
  - Myelodysplastic syndrome [Recovering/Resolving]
  - Product use in unapproved indication [Unknown]

NARRATIVE: CASE EVENT DATE: 20210101
